FAERS Safety Report 18349943 (Version 1)
Quarter: 2020Q4

REPORT INFORMATION
  Report Type: Spontaneous
  Country: US (occurrence: US)
  Receive Date: 20201006
  Receipt Date: 20201006
  Transmission Date: 20210114
  Serious: Yes (Other)
  Sender: FDA-Public Use
  Company Number: None

PATIENT
  Age: 28 Year
  Sex: Female
  Weight: 57.15 kg

DRUGS (2)
  1. MULTTIVITAMIN [Concomitant]
  2. PARAGARD T 380A [Suspect]
     Active Substance: COPPER
     Dates: start: 20171117, end: 20201005

REACTIONS (5)
  - Pain in extremity [None]
  - Pregnancy with contraceptive device [None]
  - Abortion spontaneous [None]
  - Exposure during pregnancy [None]
  - Abdominal pain [None]

NARRATIVE: CASE EVENT DATE: 20201003
